FAERS Safety Report 7606992-1 (Version None)
Quarter: 2011Q3

REPORT INFORMATION
  Report Type: 
  Country: None (occurrence: None)
  Receive Date: 20110706
  Receipt Date: 20110621
  Transmission Date: 20111222
  Serious: Yes (Death, Other)
  Sender: FDA-Public Use
  Company Number: MC201100277

PATIENT
  Age: 58 Year
  Sex: Female
  Weight: 91.8 kg

DRUGS (8)
  1. REOPRO [Concomitant]
  2. NIPRIDE (NITROPRUSSIDE SODIUM) [Concomitant]
  3. ASPIRIN [Concomitant]
  4. HEPARIN [Concomitant]
  5. PLAVIX [Concomitant]
  6. ADENOSINE [Concomitant]
  7. ANGIOMAX [Suspect]
     Indication: PERCUTANEOUS CORONARY INTERVENTION
     Dosage: 0.75 MG/KG (13.5 ML), BOLUS; 0.25 MGKG (4.5 ML/HOUR), INTRAVENOUS
     Route: 040
     Dates: start: 20110609, end: 20110609
  8. ANGIOMAX [Suspect]
     Indication: PERCUTANEOUS CORONARY INTERVENTION
     Dosage: 0.75 MG/KG (13.5 ML), BOLUS; 0.25 MGKG (4.5 ML/HOUR), INTRAVENOUS
     Route: 040
     Dates: start: 20110609, end: 20110609

REACTIONS (16)
  - EJECTION FRACTION DECREASED [None]
  - METABOLIC ACIDOSIS [None]
  - RESPIRATORY TRACT HAEMORRHAGE [None]
  - ENDOTRACHEAL INTUBATION COMPLICATION [None]
  - PNEUMONIA [None]
  - LEFT VENTRICULAR HYPERTROPHY [None]
  - CATHETER SITE HAEMORRHAGE [None]
  - RESPIRATORY ACIDOSIS [None]
  - HAEMOGLOBIN DECREASED [None]
  - PULSELESS ELECTRICAL ACTIVITY [None]
  - COAGULATION TIME PROLONGED [None]
  - PULMONARY HAEMORRHAGE [None]
  - HAEMATOCRIT DECREASED [None]
  - FATIGUE [None]
  - PULMONARY OEDEMA [None]
  - AORTIC VALVE CALCIFICATION [None]
